FAERS Safety Report 10428407 (Version 1)
Quarter: 2014Q3

REPORT INFORMATION
  Report Type: Spontaneous
  Country: US (occurrence: US)
  Receive Date: 20140903
  Receipt Date: 20140903
  Transmission Date: 20150326
  Serious: Yes (Hospitalization)
  Sender: FDA-Public Use
  Company Number: US-GLAXOSMITHKLINE-A1087568A

PATIENT
  Sex: Male

DRUGS (2)
  1. COREG [Suspect]
     Active Substance: CARVEDILOL
     Indication: PRODUCT USED FOR UNKNOWN INDICATION
     Dosage: 12.5MG UNKNOWN
     Route: 065
  2. LOVAZA [Suspect]
     Active Substance: OMEGA-3-ACID ETHYL ESTERS
     Indication: PRODUCT USED FOR UNKNOWN INDICATION
     Dosage: 1G UNKNOWN
     Route: 065

REACTIONS (9)
  - Implantable defibrillator insertion [Unknown]
  - Cardiac disorder [Unknown]
  - Depression [Unknown]
  - Nerve injury [Unknown]
  - Coronary artery bypass [Unknown]
  - Back pain [Unknown]
  - Musculoskeletal pain [Unknown]
  - Cardiac failure congestive [Unknown]
  - Investigation [Unknown]
